FAERS Safety Report 17827943 (Version 1)
Quarter: 2020Q2

REPORT INFORMATION
  Report Type: Spontaneous
  Country: US (occurrence: US)
  Receive Date: 20200526
  Receipt Date: 20200526
  Transmission Date: 20200714
  Serious: Yes (Death)
  Sender: FDA-Public Use
  Company Number: None

PATIENT
  Age: 53 Year
  Sex: Female
  Weight: 98.3 kg

DRUGS (1)
  1. REMDESIVIR. [Suspect]
     Active Substance: REMDESIVIR

REACTIONS (5)
  - Atrial fibrillation [None]
  - Hypotension [None]
  - Respiratory failure [None]
  - Bradycardia [None]
  - Cardio-respiratory arrest [None]

NARRATIVE: CASE EVENT DATE: 20200520
